FAERS Safety Report 7310460-4 (Version None)
Quarter: 2011Q1

REPORT INFORMATION
  Report Type: 
  Country: None (occurrence: None)
  Receive Date: 20110224
  Receipt Date: 20100908
  Transmission Date: 20110831
  Serious: No
  Sender: FDA-Public Use
  Company Number: US-BRISTOL-MYERS SQUIBB COMPANY-15277593

PATIENT
  Sex: Male

DRUGS (4)
  1. GLIPIZIDE [Suspect]
  2. ACTOS [Suspect]
  3. METFORMIN HCL [Suspect]
  4. LANTUS [Suspect]
     Dosage: 1DF=20UNITS EVERY 3 DAYS INCREASED DOSE NOW 52 UNITS.

REACTIONS (1)
  - BLOOD GLUCOSE INCREASED [None]
